FAERS Safety Report 9916444 (Version 1)
Quarter: 2014Q1

REPORT INFORMATION
  Report Type: Spontaneous
  Country: US (occurrence: None)
  Receive Date: 20140220
  Receipt Date: 20140220
  Transmission Date: 20141002
  Serious: Yes (Disabling, Other)
  Sender: FDA-Public Use
  Company Number: None

PATIENT
  Age: 46 Year
  Sex: 0

DRUGS (3)
  1. DEPO-TESTOSTERONE [Suspect]
     Indication: BLOOD TESTOSTERONE DECREASED
  2. DEPO-TESTOSTERONE [Suspect]
     Indication: ASTHENIA
  3. DEPO-TESTOSTERONE [Suspect]

REACTIONS (3)
  - Peripheral artery thrombosis [None]
  - Local swelling [None]
  - Skin discolouration [None]
